FAERS Safety Report 9800193 (Version 1)
Quarter: 2014Q1

REPORT INFORMATION
  Report Type: Spontaneous
  Country: US (occurrence: US)
  Receive Date: 20140106
  Receipt Date: 20140106
  Transmission Date: 20141002
  Serious: Yes (Hospitalization, Other)
  Sender: FDA-Public Use
  Company Number: US-PFIZER INC-2014000774

PATIENT
  Age: 61 Year
  Sex: Female

DRUGS (1)
  1. REVATIO [Suspect]
     Indication: PULMONARY HYPERTENSION
     Dosage: 20 MGX4 TABLETS THREE TIMES DAILY
     Dates: start: 20090218

REACTIONS (3)
  - Pneumonia [Unknown]
  - Viral infection [Unknown]
  - Arthropathy [Unknown]
